FAERS Safety Report 20042165 (Version 2)
Quarter: 2021Q4

REPORT INFORMATION
  Report Type: Other
  Country: JP (occurrence: JP)
  Receive Date: 20211108
  Receipt Date: 20211110
  Transmission Date: 20220303
  Serious: Yes (Death)
  Sender: FDA-Public Use
  Company Number: JP-CHUGAI-A2019036917ROCHE

PATIENT
  Age: 70 Year
  Sex: Female

DRUGS (5)
  1. HERCEPTIN [Suspect]
     Active Substance: TRASTUZUMAB
     Indication: Extramammary Paget^s disease
     Route: 041
  2. FLUOROURACIL [Concomitant]
     Active Substance: FLUOROURACIL
     Indication: Extramammary Paget^s disease
     Route: 065
  3. CISPLATIN [Concomitant]
     Active Substance: CISPLATIN
     Indication: Extramammary Paget^s disease
     Route: 041
  4. DOCETAXEL [Concomitant]
     Active Substance: DOCETAXEL
     Indication: Extramammary Paget^s disease
     Dosage: DOSAGE IS UNCERTAIN.
     Route: 041
  5. TS-1 [Concomitant]
     Active Substance: GIMERACIL\OTERACIL\TEGAFUR
     Indication: Extramammary Paget^s disease
     Route: 048

REACTIONS (2)
  - Extramammary Paget^s disease [Fatal]
  - Off label use [Unknown]
